FAERS Safety Report 5037272-9 (Version None)
Quarter: 2006Q2

REPORT INFORMATION
  Report Type: 
  Country: None (occurrence: None)
  Receive Date: 20060622
  Receipt Date: 20060613
  Transmission Date: 20061013
  Serious: Yes (Hospitalization, Other)
  Sender: FDA-Public Use
  Company Number: TPA2006A00969

PATIENT
  Age: 74 Year
  Sex: Male
  Weight: 108.4097 kg

DRUGS (15)
  1. ACTOS [Suspect]
     Indication: DIABETES MELLITUS NON-INSULIN-DEPENDENT
     Dosage: 30 MG, 1 IN 1 D, PER ORAL
     Route: 048
     Dates: start: 20021213
  2. TERAZOSIN HCL [Concomitant]
  3. TOPROL XL (METOPROLOL SUCCINATE) (100 MILLIGRAM) [Concomitant]
  4. PLAVIX (CLOPIDOGREL SULFATE) (75 MILLIGRAM) [Concomitant]
  5. GLIPIZIDE (GLIPIZIDE) (5 MILLIGRAM) [Concomitant]
  6. ZETIA [Concomitant]
  7. FUROSEMIDE [Concomitant]
  8. KLOR-CON (POTASSIUM CHLORIDE) (10 MILLIEQUIVALENTS) [Concomitant]
  9. HYZAAR [Concomitant]
  10. PRAVACHOL (PRAVASTATIN SODIUM) (40 MILLIGRAM) [Concomitant]
  11. NITROSTAT [Concomitant]
  12. ALEVE [Concomitant]
  13. ECOTRIN (ACETYLSALICYLIC ACID) (325 MILLIGRAM) [Concomitant]
  14. AMOXICILLIN (AMOXICILLIN) (500 MILLIGRAM) [Concomitant]
  15. CENTRUM (VITAMINS NOS, MINERALS NOS) [Concomitant]

REACTIONS (7)
  - ARTERIAL HAEMORRHAGE [None]
  - CARDIAC FAILURE CONGESTIVE [None]
  - CHEST PAIN [None]
  - CONDITION AGGRAVATED [None]
  - MYOCARDIAL INFARCTION [None]
  - VASCULAR OCCLUSION [None]
  - WEIGHT FLUCTUATION [None]
